FAERS Safety Report 4548844-X (Version None)
Quarter: 2004Q4

REPORT INFORMATION
  Report Type: 
  Country: None (occurrence: None)
  Receive Date: 20041227
  Receipt Date: 20041130
  Transmission Date: 20050328
  Serious: No
  Sender: FDA-Public Use
  Company Number: 04P-163-0281937-00

PATIENT
  Age: 68 Year
  Sex: Female
  Weight: 62.5964 kg

DRUGS (11)
  1. HUMIRA [Suspect]
     Indication: RHEUMATOID ARTHRITIS
     Dosage: 40 MG, 1 IN 2 WK, SUBCUTANEOUS
     Route: 058
     Dates: start: 20030101
  2. RANITIDINE HYDROCHLORIDE [Concomitant]
  3. GLIBENCLAMIDE [Concomitant]
  4. ROSIGLITAZONE MALEATE [Concomitant]
  5. MIRALEX [Concomitant]
  6. CALCIUM GLUCONATE [Concomitant]
  7. ASCORBIC ACID [Concomitant]
  8. LIQUID VITAMIN [Concomitant]
  9. ACTINEL [Concomitant]
  10. FORTEO [Concomitant]
  11. VITAMIN B COMPLEX CAP [Concomitant]

REACTIONS (6)
  - ABDOMINAL DISTENSION [None]
  - ABDOMINAL PAIN UPPER [None]
  - CONDITION AGGRAVATED [None]
  - DECREASED APPETITE [None]
  - INJECTION SITE PAIN [None]
  - WEIGHT INCREASED [None]
